FAERS Safety Report 7125083-X (Version None)
Quarter: 2010Q4

REPORT INFORMATION
  Report Type: 
  Country: None (occurrence: None)
  Receive Date: 20101129
  Receipt Date: 20101020
  Transmission Date: 20110411
  Serious: Yes (Other)
  Sender: FDA-Public Use
  Company Number: CA-AMGEN-CANSP2010000553

PATIENT

DRUGS (2)
  1. ARANESP [Suspect]
     Indication: HYPOPLASTIC ANAEMIA
     Dosage: 500 MG, UNK
     Dates: start: 20100522, end: 20100915
  2. MORPHINE [Concomitant]
     Indication: SPINAL COLUMN STENOSIS

REACTIONS (4)
  - CARDIAC DISORDER [None]
  - DYSPNOEA [None]
  - ILL-DEFINED DISORDER [None]
  - MALAISE [None]
